FAERS Safety Report 6216604-X (Version None)
Quarter: 2009Q2

REPORT INFORMATION
  Report Type: 
  Country: None (occurrence: None)
  Receive Date: 20090605
  Receipt Date: 20090603
  Transmission Date: 20091009
  Serious: Yes (Hospitalization, Other)
  Sender: FDA-Public Use
  Company Number: US-ASTRAZENECA-2008UW26524

PATIENT
  Age: 56 Year
  Sex: Female
  Weight: 90.7 kg

DRUGS (8)
  1. SEROQUEL [Suspect]
     Indication: SLEEP DISORDER
     Route: 048
     Dates: start: 20030101, end: 20050101
  2. CLOZARIL [Concomitant]
  3. ZOLOFT [Concomitant]
     Dates: start: 20080701
  4. CYMBALTA [Concomitant]
     Dates: start: 20050101
  5. GABAPENTIN [Concomitant]
     Dates: start: 20050101
  6. CLONAZEPAM [Concomitant]
     Dates: start: 20050101, end: 20080101
  7. EFFEXOR [Concomitant]
     Dates: start: 20030101
  8. TRAZODONE HCL [Concomitant]

REACTIONS (21)
  - ABDOMINAL PAIN [None]
  - ASPARTATE AMINOTRANSFERASE INCREASED [None]
  - BACK PAIN [None]
  - BLOOD POTASSIUM INCREASED [None]
  - CHOLELITHIASIS [None]
  - DIABETES MELLITUS [None]
  - DIZZINESS [None]
  - FATIGUE [None]
  - FIBROMYALGIA [None]
  - GASTROOESOPHAGEAL REFLUX DISEASE [None]
  - GLYCOSYLATED HAEMOGLOBIN INCREASED [None]
  - GOITRE [None]
  - HYPERGLYCAEMIA [None]
  - IDIOPATHIC THROMBOCYTOPENIC PURPURA [None]
  - NEUROPATHY PERIPHERAL [None]
  - OSTEOARTHRITIS [None]
  - OSTEOPENIA [None]
  - PARAESTHESIA [None]
  - PULMONARY HYPERTENSION [None]
  - RESPIRATORY DISORDER [None]
  - SPINAL OSTEOARTHRITIS [None]
